FAERS Safety Report 23970467 (Version 2)
Quarter: 2024Q3

REPORT INFORMATION
  Report Type: Report from Study
  Country: US (occurrence: None)
  Receive Date: 20240613
  Receipt Date: 20240730
  Transmission Date: 20241016
  Serious: Yes (Hospitalization)
  Sender: ASTRAZENECA
  Company Number: 2024A132769

PATIENT
  Sex: Female

DRUGS (1)
  1. FASENRA [Suspect]
     Active Substance: BENRALIZUMAB
     Route: 058

REACTIONS (4)
  - Fall [Unknown]
  - Foot fracture [Unknown]
  - Spinal fracture [Unknown]
  - Product dose omission issue [Unknown]
